FAERS Safety Report 10477724 (Version 1)
Quarter: 2014Q3

REPORT INFORMATION
  Report Type: Spontaneous
  Country: JP (occurrence: None)
  Receive Date: 20140924
  Receipt Date: 20140924
  Transmission Date: 20150326
  Serious: Yes (Hospitalization)
  Sender: FDA-Public Use
  Company Number: KAD201409-001127

PATIENT
  Age: 52 Year
  Sex: Male

DRUGS (2)
  1. RIBAVIRIN(RIBAVIRIN) [Suspect]
     Active Substance: RIBAVIRIN
     Indication: HEPATITIS C
     Route: 048
     Dates: start: 201106
  2. PEGINTERFERON ALFA-2B [Suspect]
     Active Substance: PEGINTERFERON ALFA-2B
     Indication: HEPATITIS C
     Dosage: 100 MG/BODY WEEKLY, SUBCUTANEOUS
     Route: 058
     Dates: start: 201106

REACTIONS (12)
  - Malaise [None]
  - Alanine aminotransferase increased [None]
  - Erythema [None]
  - Aspartate aminotransferase increased [None]
  - Muscular weakness [None]
  - Blood lactate dehydrogenase increased [None]
  - Weight decreased [None]
  - Dermatomyositis [None]
  - Myalgia [None]
  - Grip strength decreased [None]
  - Antinuclear antibody positive [None]
  - Myopathy [None]
